FAERS Safety Report 9925511 (Version 2)
Quarter: 2014Q3

REPORT INFORMATION
  Report Type: Report from Study
  Country: US (occurrence: US)
  Receive Date: 20140226
  Receipt Date: 20140911
  Transmission Date: 20150326
  Serious: Yes (Hospitalization)
  Sender: FDA-Public Use
  Company Number: US-ALEXION PHARMACEUTICALS INC.-A201305164

PATIENT

DRUGS (2)
  1. COUMADIN [Concomitant]
     Active Substance: WARFARIN SODIUM
     Indication: PRODUCT USED FOR UNKNOWN INDICATION
     Dosage: 5 MG, UNK
     Route: 065
  2. SOLIRIS [Suspect]
     Active Substance: ECULIZUMAB
     Indication: PAROXYSMAL NOCTURNAL HAEMOGLOBINURIA
     Dosage: UNK
     Route: 042
     Dates: start: 20120405

REACTIONS (8)
  - Back pain [Recovered/Resolved]
  - Jaundice [Unknown]
  - Fatigue [Unknown]
  - Abdominal pain [Unknown]
  - Quality of life decreased [Unknown]
  - Dyspnoea [Unknown]
  - Haemoglobinuria [Unknown]
  - Activities of daily living impaired [Unknown]
